FAERS Safety Report 20064817 (Version 4)
Quarter: 2022Q4

REPORT INFORMATION
  Report Type: Report from Study
  Country: JP (occurrence: JP)
  Receive Date: 20211112
  Receipt Date: 20221108
  Transmission Date: 20230113
  Serious: Yes (Hospitalization, Other)
  Sender: FDA-Public Use
  Company Number: JP-JNJFOC-20210846543

PATIENT
  Age: 63 Year
  Sex: Female
  Weight: 79 kg

DRUGS (26)
  1. UPTRAVI [Suspect]
     Active Substance: SELEXIPAG
     Indication: Pulmonary arterial hypertension
     Dosage: 0.2 MG, BID
     Route: 048
     Dates: start: 20181114, end: 20190507
  2. UPTRAVI [Suspect]
     Active Substance: SELEXIPAG
     Indication: Pulmonary arterial hypertension
     Route: 048
     Dates: start: 20190508, end: 20191219
  3. UPTRAVI [Suspect]
     Active Substance: SELEXIPAG
     Route: 048
     Dates: start: 20200408, end: 20200602
  4. UPTRAVI [Suspect]
     Active Substance: SELEXIPAG
     Route: 048
     Dates: start: 20210224, end: 20210622
  5. UPTRAVI [Suspect]
     Active Substance: SELEXIPAG
     Route: 048
     Dates: start: 20210623, end: 20210921
  6. UPTRAVI [Suspect]
     Active Substance: SELEXIPAG
     Route: 048
     Dates: start: 20210922, end: 20211116
  7. UPTRAVI [Suspect]
     Active Substance: SELEXIPAG
     Route: 048
     Dates: start: 20211117
  8. OPSUMIT [Suspect]
     Active Substance: MACITENTAN
     Indication: Pulmonary arterial hypertension
     Route: 048
     Dates: start: 20181114, end: 20200311
  9. OPSUMIT [Suspect]
     Active Substance: MACITENTAN
     Indication: Pulmonary arterial hypertension
     Route: 048
     Dates: start: 20201028
  10. OPSUMIT [Suspect]
     Active Substance: MACITENTAN
     Route: 048
     Dates: start: 20201028
  11. REVATIO [Suspect]
     Active Substance: SILDENAFIL CITRATE
     Indication: Pulmonary arterial hypertension
     Route: 048
     Dates: start: 20181114
  12. REVATIO [Suspect]
     Active Substance: SILDENAFIL CITRATE
     Route: 048
     Dates: end: 20200508
  13. REVATIO [Suspect]
     Active Substance: SILDENAFIL CITRATE
     Route: 048
  14. ADCIRCA [Suspect]
     Active Substance: TADALAFIL
     Indication: Pulmonary arterial hypertension
     Route: 065
     Dates: start: 20200509, end: 20200603
  15. ADEMPAS [Concomitant]
     Active Substance: RIOCIGUAT
     Route: 048
     Dates: start: 20200701
  16. TOCOPHERYL NICOTINATE, D-.ALPHA. [Concomitant]
     Active Substance: TOCOPHERYL NICOTINATE, D-.ALPHA.
     Indication: Peripheral circulatory failure
     Route: 048
     Dates: start: 20181114
  17. TOCOPHERYL NICOTINATE, D-.ALPHA. [Concomitant]
     Active Substance: TOCOPHERYL NICOTINATE, D-.ALPHA.
  18. NEXIUM [Concomitant]
     Active Substance: ESOMEPRAZOLE MAGNESIUM
     Indication: Gastrooesophageal reflux disease
     Dosage: 10 MG, QD
  19. URSO [Concomitant]
     Active Substance: URSODIOL
     Indication: Pulmonary arterial hypertension
     Route: 048
  20. URSO [Concomitant]
     Active Substance: URSODIOL
     Indication: Primary biliary cholangitis
  21. REVATIO [Concomitant]
     Active Substance: SILDENAFIL CITRATE
     Indication: Pulmonary arterial hypertension
     Route: 048
     Dates: start: 20181114
  22. REVATIO [Concomitant]
     Active Substance: SILDENAFIL CITRATE
     Indication: Pulmonary arterial hypertension
  23. OXYGEN [Concomitant]
     Active Substance: OXYGEN
     Indication: Product used for unknown indication
     Route: 055
     Dates: start: 201810
  24. BERAPROST SODIUM [Concomitant]
     Active Substance: BERAPROST SODIUM
     Route: 048
     Dates: start: 20200311
  25. GASTER [Concomitant]
     Active Substance: FAMOTIDINE
     Route: 048
     Dates: start: 20201028
  26. QUERCUS SALICINA STEM [Concomitant]
     Active Substance: QUERCUS SALICINA STEM
     Route: 048
     Dates: start: 20200408

REACTIONS (3)
  - Pulmonary hypertension [Unknown]
  - Transfusion [Unknown]
  - Anaemia [Recovered/Resolved]

NARRATIVE: CASE EVENT DATE: 20191210
